FAERS Safety Report 6159200-5 (Version None)
Quarter: 2009Q2

REPORT INFORMATION
  Report Type: 
  Country: None (occurrence: None)
  Receive Date: 20090414
  Receipt Date: 20081023
  Transmission Date: 20091009
  Serious: Yes (Other)
  Sender: FDA-Public Use
  Company Number: NALB20080001

PATIENT
  Age: 16 Year
  Sex: Male

DRUGS (5)
  1. NALBUPHINE [Suspect]
     Indication: PAIN
     Dates: start: 20080923, end: 20080925
  2. FENTANYL [Suspect]
     Indication: PAIN
     Dosage: 500 MCG/24HOUR,
     Dates: start: 20080922, end: 20080925
  3. ACETAMINOPHEN [Suspect]
     Indication: PAIN
     Dosage: 825 MG OVER SIX HOURS X 4, INTRAVENOUS
     Route: 042
     Dates: start: 20080923, end: 20080925
  4. HYDREA [Concomitant]
  5. ACETAMINOPHEN AND CODEINE PHOSPHATE [Concomitant]

REACTIONS (4)
  - APNOEA [None]
  - DYSPNOEA [None]
  - HEADACHE [None]
  - SOMNOLENCE [None]
